FAERS Safety Report 10483662 (Version 5)
Quarter: 2015Q2

REPORT INFORMATION
  Report Type: Spontaneous
  Country: FR (occurrence: FR)
  Receive Date: 20140930
  Receipt Date: 20150420
  Transmission Date: 20150821
  Serious: Yes (Disabling, Other)
  Sender: FDA-Public Use
  Company Number: FR-TEVA-497013ISR

PATIENT
  Age: 69 Year
  Sex: Female
  Weight: 61 kg

DRUGS (7)
  1. ISOPTINE LP 240MG [Concomitant]
     Indication: HYPERTENSION
     Route: 048
  2. COZAAR [Concomitant]
     Active Substance: LOSARTAN POTASSIUM
     Indication: HYPERTENSION
     Dosage: 1 DOSAGE FORMS DAILY; A LONG TIME
     Route: 048
  3. CEBUTID 50MG [Concomitant]
     Route: 048
  4. LOSARTAN [Concomitant]
     Active Substance: LOSARTAN
     Indication: HYPERTENSION
     Route: 048
  5. OFLOXACINE TEVA 200MG [Suspect]
     Active Substance: OFLOXACIN
     Indication: URINARY TRACT INFECTION
     Dosage: 2 DOSAGE FORMS DAILY;
     Route: 048
     Dates: start: 20140630, end: 20140705
  6. OFLOXACINE TEVA 200MG [Suspect]
     Active Substance: OFLOXACIN
     Indication: PYELONEPHRITIS
  7. ESIDREX [Concomitant]
     Active Substance: HYDROCHLOROTHIAZIDE
     Indication: HYPERTENSION
     Route: 048

REACTIONS (13)
  - Tendonitis [Unknown]
  - Amyotrophy [Unknown]
  - Abasia [Not Recovered/Not Resolved]
  - Tendon pain [Unknown]
  - Nausea [Unknown]
  - Tendonitis [Not Recovered/Not Resolved]
  - Deep vein thrombosis [Not Recovered/Not Resolved]
  - Myalgia [Unknown]
  - Vomiting [Unknown]
  - Tremor [Unknown]
  - Tendon rupture [Recovering/Resolving]
  - Asthenia [Not Recovered/Not Resolved]
  - Nightmare [Unknown]

NARRATIVE: CASE EVENT DATE: 201407
